FAERS Safety Report 17835672 (Version 1)
Quarter: 2020Q2

REPORT INFORMATION
  Report Type: Report from Study
  Country: GB (occurrence: GB)
  Receive Date: 20200528
  Receipt Date: 20200528
  Transmission Date: 20200714
  Serious: Yes (Other)
  Sender: FDA-Public Use
  Company Number: NVSC2020GB071445

PATIENT
  Sex: Male

DRUGS (2)
  1. SULFASALAZINE. [Concomitant]
     Active Substance: SULFASALAZINE
     Indication: PRODUCT USED FOR UNKNOWN INDICATION
     Dosage: UNK
     Route: 065
  2. COSENTYX [Suspect]
     Active Substance: SECUKINUMAB
     Indication: PSORIATIC ARTHROPATHY
     Dosage: 300 MG, QMO (PRE-FILLED PEN)
     Route: 058
     Dates: start: 201808

REACTIONS (10)
  - Cough [Unknown]
  - Arthritis [Unknown]
  - Oropharyngeal pain [Unknown]
  - Aphonia [Unknown]
  - Headache [Unknown]
  - Influenza like illness [Unknown]
  - Malaise [Unknown]
  - Viral infection [Unknown]
  - Product dose omission [Unknown]
  - Suspected COVID-19 [Unknown]
